FAERS Safety Report 14124482 (Version 3)
Quarter: 2018Q1

REPORT INFORMATION
  Report Type: Spontaneous
  Country: US (occurrence: US)
  Receive Date: 20171025
  Receipt Date: 20180110
  Transmission Date: 20180508
  Serious: No
  Sender: FDA-Public Use
  Company Number: US-PFIZER INC-2017457196

PATIENT
  Age: 62 Year
  Sex: Female

DRUGS (3)
  1. AZITHROMYCIN ANHYDROUS. [Concomitant]
     Active Substance: AZITHROMYCIN ANHYDROUS
     Indication: ATYPICAL PNEUMONIA
     Dosage: 250 MG, UNK
     Dates: start: 20170828
  2. TESSALON [Suspect]
     Active Substance: BENZONATATE
     Indication: COUGH
     Dosage: 100 MG, 3X/DAY
     Dates: start: 20170828, end: 20170829
  3. TESSALON [Suspect]
     Active Substance: BENZONATATE
     Indication: OROPHARYNGEAL PAIN

REACTIONS (1)
  - Drug ineffective [Recovered/Resolved]

NARRATIVE: CASE EVENT DATE: 20170828
